FAERS Safety Report 9684737 (Version 2)
Quarter: 2014Q2

REPORT INFORMATION
  Report Type: Spontaneous
  Country: IT (occurrence: IT)
  Receive Date: 20131112
  Receipt Date: 20140415
  Transmission Date: 20141212
  Serious: Yes (Hospitalization)
  Sender: FDA-Public Use
  Company Number: PHHY2013IT126930

PATIENT
  Age: 64 Year
  Sex: Female

DRUGS (7)
  1. ALLOPURINOL [Suspect]
     Route: 048
     Dates: start: 20130930, end: 20131014
  2. AZATIOPIRINE [Concomitant]
     Route: 048
  3. PREDNISONE [Concomitant]
     Route: 048
  4. AMLODIPINE [Concomitant]
     Route: 048
  5. LEVOTHYROXINE [Concomitant]
     Route: 048
  6. CALCITRIOL [Concomitant]
     Route: 048
  7. ERYTHROPOIETIN [Concomitant]
     Indication: ANAEMIA
     Route: 058

REACTIONS (4)
  - Tubulointerstitial nephritis [Recovered/Resolved]
  - Erythema [Recovered/Resolved]
  - Rash [Recovered/Resolved]
  - Pruritus [Recovered/Resolved]
